FAERS Safety Report 9054862 (Version 1)
Quarter: 2013Q1

REPORT INFORMATION
  Report Type: Spontaneous
  Country: FR (occurrence: FR)
  Receive Date: 20130208
  Receipt Date: 20130208
  Transmission Date: 20140127
  Serious: Yes (Hospitalization)
  Sender: FDA-Public Use
  Company Number: FR-SANOFI-AVENTIS-2013SA008333

PATIENT
  Age: 69 Year
  Sex: Male

DRUGS (4)
  1. RIFADINE [Suspect]
     Indication: WOUND INFECTION
     Route: 065
     Dates: start: 20120925, end: 20121113
  2. COUMADINE [Interacting]
     Indication: CARDIAC VALVE DISEASE
     Route: 065
     Dates: start: 201210
  3. COUMADINE [Interacting]
     Indication: CARDIAC VALVE DISEASE
     Route: 065
     Dates: start: 20121019
  4. CALCIPARINE [Concomitant]
     Dates: end: 201212

REACTIONS (2)
  - International normalised ratio decreased [Recovered/Resolved]
  - Drug interaction [Unknown]
